FAERS Safety Report 9996212 (Version 1)
Quarter: 2014Q1

REPORT INFORMATION
  Report Type: Spontaneous
  Country: VE (occurrence: VE)
  Receive Date: 20140311
  Receipt Date: 20140311
  Transmission Date: 20141002
  Serious: Yes (Death)
  Sender: FDA-Public Use
  Company Number: VE-PFIZER INC-2014069591

PATIENT
  Age: 65 Year
  Sex: Male

DRUGS (1)
  1. CADUET [Suspect]
     Dosage: 5MG/40MG, UNK

REACTIONS (1)
  - Gastric cancer [Fatal]
